FAERS Safety Report 9237136 (Version 2)
Quarter: 2013Q2

REPORT INFORMATION
  Report Type: Spontaneous
  Country: FR (occurrence: FR)
  Receive Date: 20130417
  Receipt Date: 20130627
  Transmission Date: 20140414
  Serious: Yes (Hospitalization)
  Sender: FDA-Public Use
  Company Number: FR-UCBSA-083184

PATIENT
  Age: 30 Year
  Sex: Female

DRUGS (7)
  1. VIMPAT [Suspect]
     Indication: EPILEPSY
     Route: 048
  2. KEPPRA [Concomitant]
     Indication: EPILEPSY
     Route: 048
  3. DIFFU-K [Concomitant]
  4. LAMOTRIGINE [Concomitant]
     Indication: EPILEPSY
  5. RISPERDAL [Concomitant]
  6. URBANYL [Concomitant]
     Indication: EPILEPSY
     Route: 048
  7. ZONEGRAN [Concomitant]
     Indication: EPILEPSY

REACTIONS (3)
  - Status epilepticus [Unknown]
  - Lung disorder [Unknown]
  - Bradycardia [Unknown]
